FAERS Safety Report 11029703 (Version 1)
Quarter: 2015Q2

REPORT INFORMATION
  Report Type: Spontaneous
  Country: BR (occurrence: BR)
  Receive Date: 20150415
  Receipt Date: 20150415
  Transmission Date: 20150821
  Serious: Yes (Hospitalization)
  Sender: FDA-Public Use
  Company Number: BR-ACCORD-029623

PATIENT
  Age: 65 Year
  Sex: Female
  Weight: 46.9 kg

DRUGS (2)
  1. CARBOPLATIN. [Concomitant]
     Active Substance: CARBOPLATIN
     Indication: OVARIAN EPITHELIAL CANCER
     Route: 042
  2. PACLITAXEL/PACLITAXEL LIPOSOME [Suspect]
     Active Substance: PACLITAXEL
     Indication: OVARIAN EPITHELIAL CANCER
     Dosage: SECOND CYCLE (STRENGTH: 6MG/ML).?ALSO RECEIVED IN JAN-2015.
     Route: 042
     Dates: start: 20150206

REACTIONS (5)
  - Discomfort [Recovered/Resolved]
  - Infusion related reaction [None]
  - Respiratory distress [Recovered/Resolved]
  - Flushing [Recovered/Resolved]
  - Pruritus [Recovered/Resolved]

NARRATIVE: CASE EVENT DATE: 20150206
